FAERS Safety Report 11998515 (Version 1)
Quarter: 2016Q1

REPORT INFORMATION
  Report Type: Spontaneous
  Country: US (occurrence: None)
  Receive Date: 20160203
  Receipt Date: 20160203
  Transmission Date: 20160526
  Serious: No
  Sender: FDA-Public Use
  Company Number: None

PATIENT
  Sex: Male
  Weight: 79.38 kg

DRUGS (2)
  1. AMOX TRK AMOXICILLIN + CLAVULANATE CLV 875-125 MG TAB SANDOZ [Suspect]
     Active Substance: AMOXICILLIN\CLAVULANATE POTASSIUM
     Indication: SINUSITIS
     Dosage: 875-125 MG 2X ORAL
     Route: 048
     Dates: start: 20151228, end: 20160101
  2. AMOX TRK AMOXICILLIN + CLAVULANATE CLV 875-125 MG TAB SANDOZ [Suspect]
     Active Substance: AMOXICILLIN\CLAVULANATE POTASSIUM
     Indication: EAR INFECTION
     Dosage: 875-125 MG 2X ORAL
     Route: 048
     Dates: start: 20151228, end: 20160101

REACTIONS (2)
  - Joint swelling [None]
  - Peripheral swelling [None]
